FAERS Safety Report 10011284 (Version 2)
Quarter: 2014Q1

REPORT INFORMATION
  Report Type: Report from Study
  Country: US (occurrence: US)
  Receive Date: 20140314
  Receipt Date: 20140328
  Transmission Date: 20141002
  Serious: Yes (Hospitalization)
  Sender: FDA-Public Use
  Company Number: US-JNJFOC-20140306383

PATIENT
  Age: 17 Year
  Sex: Male
  Weight: 57.4 kg

DRUGS (7)
  1. REMICADE [Suspect]
     Indication: COLITIS
     Route: 042
     Dates: start: 20121212, end: 20131205
  2. VITAMIN A [Concomitant]
     Route: 065
  3. VITAMIN D [Concomitant]
     Route: 065
  4. 5-ASA [Concomitant]
     Route: 048
  5. FISH OIL [Concomitant]
     Route: 065
  6. FOLIC ACID [Concomitant]
     Route: 065
  7. UNSPECIFIED HERBAL SUPPLEMENTS [Concomitant]
     Route: 065

REACTIONS (1)
  - Colitis [Recovered/Resolved]
